FAERS Safety Report 21693118 (Version 3)
Quarter: 2023Q2

REPORT INFORMATION
  Report Type: Spontaneous
  Country: KR (occurrence: KR)
  Receive Date: 20221207
  Receipt Date: 20230411
  Transmission Date: 20230722
  Serious: Yes (Death, Hospitalization, Other)
  Sender: FDA-Public Use
  Company Number: KR-009507513-2212KOR001989

PATIENT
  Age: 75 Year
  Sex: Female
  Weight: 47.3 kg

DRUGS (11)
  1. PEMBROLIZUMAB [Suspect]
     Active Substance: PEMBROLIZUMAB
     Indication: Endometrial cancer
     Dosage: 200 MILLIGRAM
     Route: 042
     Dates: start: 20220907, end: 20220907
  2. PEMBROLIZUMAB [Suspect]
     Active Substance: PEMBROLIZUMAB
     Dosage: 200 MILLIGRAM
     Route: 042
     Dates: start: 20221002, end: 20221002
  3. PEMBROLIZUMAB [Suspect]
     Active Substance: PEMBROLIZUMAB
     Dosage: 200 MILLIGRAM
     Route: 042
     Dates: start: 20221124, end: 20221124
  4. LENVATINIB MESYLATE [Suspect]
     Active Substance: LENVATINIB MESYLATE
     Indication: Endometrial cancer
     Dosage: 14 MILLIGRAM
     Route: 048
     Dates: start: 20220907, end: 20221128
  5. FEROBA YOU SR [Concomitant]
     Indication: Anaemia
     Dosage: 1 TABLET
     Route: 048
     Dates: start: 20220907
  6. ENTELON [Concomitant]
     Indication: Pulmonary embolism
     Dosage: 2 TABLETS
     Route: 048
     Dates: start: 20201214
  7. ELIQUIS [Concomitant]
     Active Substance: APIXABAN
     Indication: Pulmonary embolism
     Dosage: 1 TABLET
     Route: 048
     Dates: start: 20201214
  8. ACETAMINOPHEN [Concomitant]
     Active Substance: ACETAMINOPHEN
     Indication: Pain
     Dosage: 3 CAPSULES
     Route: 048
     Dates: start: 20220826
  9. CELEBREX [Concomitant]
     Active Substance: CELECOXIB
     Indication: Pain
     Dosage: 2 CAPSULES
     Route: 048
     Dates: start: 20220826
  10. LYRICA [Concomitant]
     Active Substance: PREGABALIN
     Indication: Pain
     Dosage: 2 CAPSULES
     Route: 048
     Dates: start: 20220826
  11. LAFUTIDINE [Concomitant]
     Active Substance: LAFUTIDINE
     Indication: Gastritis prophylaxis
     Dosage: 2 TABLETS
     Route: 048
     Dates: start: 20220826

REACTIONS (5)
  - Multiple organ dysfunction syndrome [Fatal]
  - Discomfort [Recovering/Resolving]
  - Product use issue [Unknown]
  - Product use issue [Unknown]
  - Product use issue [Unknown]

NARRATIVE: CASE EVENT DATE: 20220907
